FAERS Safety Report 6481789-7 (Version None)
Quarter: 2009Q4

REPORT INFORMATION
  Report Type: 
  Country: None (occurrence: None)
  Receive Date: 20091208
  Receipt Date: 20091203
  Transmission Date: 20100525
  Serious: Yes (Life-Threatening, Hospitalization, Other)
  Sender: FDA-Public Use
  Company Number: GB-MERCK-0910GBR00050

PATIENT
  Age: 39 Year
  Sex: Male

DRUGS (13)
  1. PRINIVIL [Suspect]
     Indication: HYPERTENSION
     Route: 048
     Dates: start: 20090217
  2. CLOMIPRAMINE HYDROCHLORIDE [Suspect]
     Indication: ANXIETY
     Route: 048
     Dates: start: 20090217
  3. CLOMIPRAMINE HYDROCHLORIDE [Suspect]
     Route: 048
  4. CLOMIPRAMINE HYDROCHLORIDE [Suspect]
     Indication: DEPRESSION
     Route: 048
     Dates: start: 20090217
  5. CLOMIPRAMINE HYDROCHLORIDE [Suspect]
     Route: 048
  6. CLOZAPINE [Suspect]
     Indication: SCHIZOPHRENIA
     Route: 048
     Dates: start: 20031202
  7. CLOZAPINE [Suspect]
     Route: 048
     Dates: start: 20090217
  8. SCOPOLAMINE [Suspect]
     Route: 065
     Dates: start: 20090217
  9. METFORMIN [Suspect]
     Indication: TYPE 2 DIABETES MELLITUS
     Route: 048
     Dates: start: 20090217
  10. OMEPRAZOLE [Suspect]
     Route: 048
     Dates: start: 20090217
  11. SENNA [Concomitant]
     Indication: CONSTIPATION
     Route: 048
     Dates: start: 20090217
  12. ZOCOR [Suspect]
     Indication: BLOOD CHOLESTEROL INCREASED
     Route: 048
     Dates: start: 20090217
  13. THIAMINE [Concomitant]
     Route: 048

REACTIONS (10)
  - AGITATION [None]
  - BLOOD CHOLESTEROL INCREASED [None]
  - COMA SCALE ABNORMAL [None]
  - CONSTIPATION [None]
  - HAEMOGLOBIN DECREASED [None]
  - MECHANICAL VENTILATION [None]
  - MULTIPLE DRUG OVERDOSE [None]
  - NEUTROPHIL COUNT INCREASED [None]
  - OVERDOSE [None]
  - WHITE BLOOD CELL COUNT INCREASED [None]
